FAERS Safety Report 6491374-9 (Version None)
Quarter: 2009Q4

REPORT INFORMATION
  Report Type: 
  Country: None (occurrence: None)
  Receive Date: 20091208
  Receipt Date: 20091123
  Transmission Date: 20100525
  Serious: Yes (Hospitalization, Other)
  Sender: FDA-Public Use
  Company Number: TRP_06609_2009

PATIENT
  Sex: Female
  Weight: 45.9 kg

DRUGS (25)
  1. RIBAVIRIN [Suspect]
     Indication: HEPATITIS C
     Dosage: 1000 MG, 400 MG QAM AND 600 MG QPM, ORAL
     Route: 048
     Dates: start: 20071112
  2. PEGINTERFERON ALFA-2A 0.3 ML [Suspect]
     Indication: HEPATITIS C
     Dosage: 180?G 1X/WEEK SUBCUTANEOUS
     Route: 058
     Dates: start: 20071112
  3. NEUPOGEN [Suspect]
     Indication: NEUTROPENIA
     Dosage: 1 DF 1X/WEEK
     Dates: start: 20090115
  4. ESTRADIOL [Concomitant]
  5. RABEPRAZOLE [Concomitant]
  6. METOCLOPRAMIDE [Concomitant]
  7. BUPROPION HCL [Concomitant]
  8. ALPRAZOLAM [Concomitant]
  9. CLONAZEPAM [Concomitant]
  10. IXYCODONE HYDROCODONE [Concomitant]
  11. ESOMEPRAZOLE MAGNESIUM [Concomitant]
  12. OMEPRAZOLE [Concomitant]
  13. PROMETHAZINE HCL [Concomitant]
  14. COLCHICINE [Concomitant]
  15. COMBIVENT [Concomitant]
  16. ALBUTEROL SULFARE W/IPRATROPIUM BROMIDE [Concomitant]
  17. SPIRONOLACTONE [Concomitant]
  18. FUROSEMIDE [Concomitant]
  19. ZOLPIDEM TARTRATE [Concomitant]
  20. POTASSIUM CHLORIDE [Concomitant]
  21. MORPHINE [Concomitant]
  22. POTASSIUM [Concomitant]
  23. ERGICALCIFEROL [Concomitant]
  24. GABAPENTIN [Concomitant]
  25. CARISOPRODOL [Concomitant]

REACTIONS (7)
  - ASTHENIA [None]
  - HAEMATOCRIT DECREASED [None]
  - HAEMOGLOBIN DECREASED [None]
  - LEUKOPENIA [None]
  - NEUTROPENIA [None]
  - PNEUMONIA [None]
  - THROMBOCYTOPENIA [None]
